FAERS Safety Report 4928122-7 (Version None)
Quarter: 2006Q1

REPORT INFORMATION
  Report Type: 
  Country: None (occurrence: None)
  Receive Date: 20060223
  Receipt Date: 20060214
  Transmission Date: 20060701
  Serious: Yes (Hospitalization, Other)
  Sender: FDA-Public Use
  Company Number: 2004032371

PATIENT
  Age: 42 Year
  Sex: Female
  Weight: 47.8 kg

DRUGS (11)
  1. ZITHROMAC (AZITHROMYCIN) [Suspect]
     Indication: ACUTE TONSILLITIS
     Dosage: ORAL
     Route: 048
     Dates: start: 20040312, end: 20040314
  2. DILTIAZEM [Suspect]
     Indication: PRINZMETAL ANGINA
     Dosage: ORAL
     Route: 048
     Dates: start: 20040301, end: 20040317
  3. ISOSORBIDE MONONITRATE [Suspect]
     Indication: ILL-DEFINED DISORDER
     Dosage: ORAL
     Route: 048
     Dates: start: 20040301, end: 20040317
  4. BLOPRESS (CANDESARTAN CILEXETIL) [Suspect]
     Indication: ILL-DEFINED DISORDER
     Dosage: ORAL
     Route: 048
     Dates: start: 20040301, end: 20040317
  5. NATRIX (INDAPAMIDE) [Suspect]
     Indication: ILL-DEFINED DISORDER
     Dosage: ORAL
     Route: 048
     Dates: start: 20040301, end: 20040317
  6. NITROGLYCERIN [Suspect]
     Indication: ILL-DEFINED DISORDER
     Dosage: SUBLINGUAL
     Route: 060
     Dates: start: 20040301
  7. LOXONIN (LOXOPROFEN SODIUM) [Concomitant]
  8. KETEK [Concomitant]
  9. PENTICILLIN (PIPERACILLIN SODIUM) [Concomitant]
  10. FLUMARIN (FLOMOXEF SODIUM) [Concomitant]
  11. MAXIPIME [Concomitant]

REACTIONS (6)
  - ACUTE TONSILLITIS [None]
  - ANGINA PECTORIS [None]
  - CONJUNCTIVITIS [None]
  - CORNEAL DISORDER [None]
  - LACRIMATION INCREASED [None]
  - STEVENS-JOHNSON SYNDROME [None]
